APPROVED DRUG PRODUCT: POTASSIUM CHLORIDE
Active Ingredient: POTASSIUM CHLORIDE
Strength: 10MEQ
Dosage Form/Route: CAPSULE, EXTENDED RELEASE;ORAL
Application: A070980 | Product #001
Applicant: NESHER PHARMACEUTICALS USA LLC
Approved: Feb 17, 1987 | RLD: No | RS: No | Type: DISCN